FAERS Safety Report 15295936 (Version 3)
Quarter: 2018Q4

REPORT INFORMATION
  Report Type: Spontaneous
  Country: JP (occurrence: JP)
  Receive Date: 20180820
  Receipt Date: 20181210
  Transmission Date: 20190204
  Serious: Yes (Other)
  Sender: FDA-Public Use
  Company Number: JP-TEVA-2018-JP-945283

PATIENT
  Age: 67 Year
  Sex: Female

DRUGS (6)
  1. BENDAMUSTINE HYDROCHLORIDE. [Suspect]
     Active Substance: BENDAMUSTINE HYDROCHLORIDE
     Indication: B-CELL LYMPHOMA
     Dosage: 90 MG/M2X1/DAY, CYCLIC (FIRST CYCLE)
     Route: 042
     Dates: start: 201802
  2. BENDAMUSTINE HYDROCHLORIDE. [Suspect]
     Active Substance: BENDAMUSTINE HYDROCHLORIDE
     Dosage: 90 MG/M2X1/DAY, CYCLIC (THIRD CYCLE)
     Route: 042
     Dates: start: 20180511, end: 20180512
  3. RITUXIMAB. [Suspect]
     Active Substance: RITUXIMAB
     Dosage: CYCLIC (SECOND CYCLE)
     Route: 065
     Dates: start: 20180312
  4. BENDAMUSTINE HYDROCHLORIDE. [Suspect]
     Active Substance: BENDAMUSTINE HYDROCHLORIDE
     Dosage: 90 MG/M2X1/DAY, CYCLIC (SECOND CYCLE)
     Route: 042
     Dates: start: 20180312, end: 20180313
  5. RITUXIMAB. [Suspect]
     Active Substance: RITUXIMAB
     Indication: B-CELL LYMPHOMA
     Dosage: CYCLIC (FIRST CYCLE)
     Route: 065
     Dates: start: 201802
  6. RITUXIMAB. [Suspect]
     Active Substance: RITUXIMAB
     Dosage: CYCLIC (THIRD CYCLE)
     Route: 065
     Dates: start: 20180511

REACTIONS (11)
  - Lymphopenia [Unknown]
  - Prescribed underdose [Unknown]
  - Dieulafoy^s vascular malformation [Unknown]
  - Haemophagocytic lymphohistiocytosis [Recovered/Resolved]
  - Platelet count decreased [Unknown]
  - Pyrexia [Recovered/Resolved]
  - Cytomegalovirus enterocolitis [Recovering/Resolving]
  - Alopecia [Unknown]
  - Shock haemorrhagic [Unknown]
  - Neutropenia [Unknown]
  - Cytomegalovirus chorioretinitis [Recovering/Resolving]

NARRATIVE: CASE EVENT DATE: 201802
